FAERS Safety Report 5113692-9 (Version None)
Quarter: 2006Q3

REPORT INFORMATION
  Report Type: 
  Country: None (occurrence: None)
  Receive Date: 20060921
  Receipt Date: 20060828
  Transmission Date: 20061208
  Serious: Yes (Hospitalization)
  Sender: FDA-Public Use
  Company Number: 2006SP001707

PATIENT
  Age: 57 Year
  Sex: Male

DRUGS (2)
  1. PEG-INTRON [Suspect]
     Indication: HEPATITIS C
     Dates: start: 20060317
  2. REBETOL [Suspect]
     Indication: HEPATITIS C
     Dosage: PO
     Route: 048
     Dates: start: 20060317

REACTIONS (8)
  - AGEUSIA [None]
  - APPENDICITIS PERFORATED [None]
  - CHOLELITHIASIS [None]
  - CONGENITAL HAND MALFORMATION [None]
  - FATIGUE [None]
  - LIMB MALFORMATION [None]
  - PYREXIA [None]
  - TONGUE INJURY [None]
